FAERS Safety Report 6394927-1 (Version None)
Quarter: 2009Q4

REPORT INFORMATION
  Report Type: 
  Country: None (occurrence: None)
  Receive Date: 20091009
  Receipt Date: 20090924
  Transmission Date: 20100525
  Serious: Yes (Hospitalization)
  Sender: FDA-Public Use
  Company Number: GB-MYLANLABS-2009S1016837

PATIENT
  Age: 62 Year
  Sex: Male

DRUGS (2)
  1. DIHYDROCODEINE BITARTRATE INJ [Interacting]
     Indication: LIMB INJURY
     Route: 048
  2. WARFARIN [Suspect]
     Indication: HEART VALVE REPLACEMENT
     Route: 048

REACTIONS (2)
  - DRUG INTERACTION [None]
  - EPISTAXIS [None]
